FAERS Safety Report 9211389 (Version 3)
Quarter: 2015Q1

REPORT INFORMATION
  Report Type: Spontaneous
  Country: US (occurrence: US)
  Receive Date: 20130404
  Receipt Date: 20150331
  Transmission Date: 20150721
  Serious: Yes (Hospitalization, Other)
  Sender: FDA-Public Use
  Company Number: US-AMGEN-USASP2013018548

PATIENT
  Age: 63 Year
  Sex: Female
  Weight: 70.48 kg

DRUGS (2)
  1. INSULIN [Concomitant]
     Active Substance: INSULIN NOS
  2. ENBREL [Suspect]
     Active Substance: ETANERCEPT
     Indication: RHEUMATOID ARTHRITIS
     Dosage: 50 MG, QWK
     Route: 065
     Dates: start: 20120201

REACTIONS (31)
  - Orthosis user [Not Recovered/Not Resolved]
  - Lower limb fracture [Recovered/Resolved]
  - Peripheral swelling [Not Recovered/Not Resolved]
  - Confusional state [Recovered/Resolved]
  - Injection site pain [Recovered/Resolved]
  - Weight bearing difficulty [Recovered/Resolved]
  - Nausea [Recovered/Resolved]
  - Muscle atrophy [Not Recovered/Not Resolved]
  - Cystitis [Not Recovered/Not Resolved]
  - Pelvic fracture [Recovered/Resolved]
  - Haemorrhage [Unknown]
  - Contusion [Not Recovered/Not Resolved]
  - Asthenia [Recovered/Resolved]
  - Bone marrow disorder [Not Recovered/Not Resolved]
  - Injection site mass [Recovered/Resolved]
  - Mobility decreased [Not Recovered/Not Resolved]
  - Pneumonia [Recovered/Resolved]
  - Sepsis [Recovered/Resolved]
  - Pain in extremity [Not Recovered/Not Resolved]
  - Hip arthroplasty [Recovered/Resolved]
  - Joint swelling [Not Recovered/Not Resolved]
  - Finger deformity [Not Recovered/Not Resolved]
  - Pyelonephritis [Recovered/Resolved]
  - Arthralgia [Not Recovered/Not Resolved]
  - Spinal pain [Not Recovered/Not Resolved]
  - Limb asymmetry [Not Recovered/Not Resolved]
  - Dehydration [Recovered/Resolved]
  - White blood cell count abnormal [Not Recovered/Not Resolved]
  - Wheelchair user [Not Recovered/Not Resolved]
  - Musculoskeletal disorder [Not Recovered/Not Resolved]
  - Urinary tract infection [Recovered/Resolved]

NARRATIVE: CASE EVENT DATE: 201305
